FAERS Safety Report 9109866 (Version 5)
Quarter: 2016Q2

REPORT INFORMATION
  Report Type: Spontaneous
  Country: CA (occurrence: CA)
  Receive Date: 20130222
  Receipt Date: 20160629
  Transmission Date: 20160815
  Serious: Yes (Other)
  Sender: FDA-Public Use
  Company Number: CA-ROCHE-1192098

PATIENT
  Age: 22 Year
  Sex: Female

DRUGS (6)
  1. PREDNISONE. [Concomitant]
     Active Substance: PREDNISONE
     Indication: PRODUCT USED FOR UNKNOWN INDICATION
     Route: 065
  2. SYMBICORT [Concomitant]
     Active Substance: BUDESONIDE\FORMOTEROL FUMARATE DIHYDRATE
     Indication: PRODUCT USED FOR UNKNOWN INDICATION
     Route: 065
  3. XOLAIR [Suspect]
     Active Substance: OMALIZUMAB
     Indication: ASTHMA
     Dosage: 150 MG, EVERY 4 WEEKS
     Route: 058
     Dates: start: 20130211
  4. ZENHALE [Concomitant]
     Active Substance: FORMOTEROL FUMARATE\MOMETASONE FUROATE
     Indication: PRODUCT USED FOR UNKNOWN INDICATION
     Route: 065
  5. XOLAIR [Suspect]
     Active Substance: OMALIZUMAB
     Dosage: UNK
     Route: 058
     Dates: start: 20130312
  6. ADVAIR HFA [Concomitant]
     Active Substance: FLUTICASONE PROPIONATE\SALMETEROL XINAFOATE
     Indication: PRODUCT USED FOR UNKNOWN INDICATION
     Route: 065

REACTIONS (18)
  - Sleep disorder [Unknown]
  - Middle insomnia [Unknown]
  - Cough [Unknown]
  - Chest discomfort [Unknown]
  - Dyspnoea [Unknown]
  - Decreased activity [Unknown]
  - Road traffic accident [Unknown]
  - Throat irritation [Unknown]
  - Nausea [Unknown]
  - Syncope [Unknown]
  - Anxiety [Unknown]
  - Wheezing [Unknown]
  - Hyperventilation [Unknown]
  - Concussion [Unknown]
  - Asthma [Unknown]
  - Respiratory distress [Unknown]
  - Dust allergy [Unknown]
  - Sensitivity to weather change [Unknown]

NARRATIVE: CASE EVENT DATE: 20130211
